FAERS Safety Report 21375013 (Version 1)
Quarter: 2022Q3

REPORT INFORMATION
  Report Type: Report from Study
  Country: GB (occurrence: GB)
  Receive Date: 20220926
  Receipt Date: 20220926
  Transmission Date: 20221027
  Serious: Yes (Other)
  Sender: FDA-Public Use
  Company Number: GB-BRISTOL-MYERS SQUIBB COMPANY-2022-104562

PATIENT

DRUGS (22)
  1. DEXAMETHASONE [Suspect]
     Active Substance: DEXAMETHASONE
     Indication: Product used for unknown indication
     Dosage: 1 TIME PER WEEK
     Route: 048
     Dates: start: 20200822, end: 20200918
  2. DEXAMETHASONE [Suspect]
     Active Substance: DEXAMETHASONE
     Dosage: 1 TIME PER WEEK
     Route: 048
     Dates: start: 20201017, end: 20201113
  3. DEXAMETHASONE [Suspect]
     Active Substance: DEXAMETHASONE
     Dosage: 1 TIME PER WEEK
     Route: 048
     Dates: start: 20200919, end: 20201016
  4. REVLIMID [Suspect]
     Active Substance: LENALIDOMIDE
     Indication: Product used for unknown indication
     Dosage: 0 UNK
     Route: 065
     Dates: start: 20200912, end: 20200918
  5. REVLIMID [Suspect]
     Active Substance: LENALIDOMIDE
     Dosage: FREQUENCY: QAM
     Route: 048
     Dates: start: 20210820, end: 20210909
  6. REVLIMID [Suspect]
     Active Substance: LENALIDOMIDE
     Dosage: REASON IF DOSE WAS NOT ADMINISTERED.: REST PERIO
     Route: 065
     Dates: start: 20210910, end: 20210916
  7. REVLIMID [Suspect]
     Active Substance: LENALIDOMIDE
     Dosage: FREQUENCY: QAM
     Route: 048
     Dates: start: 20211015, end: 20211104
  8. REVLIMID [Suspect]
     Active Substance: LENALIDOMIDE
     Dosage: REASON IF DOSE WAS NOT ADMINISTERED.: REST PERIOD
     Route: 065
     Dates: start: 20211231, end: 20220106
  9. REVLIMID [Suspect]
     Active Substance: LENALIDOMIDE
     Dosage: FREQUECY: QAM
     Route: 048
     Dates: start: 20220204, end: 20220224
  10. REVLIMID [Suspect]
     Active Substance: LENALIDOMIDE
     Dosage: FREQUENCY: QAM
     Route: 048
     Dates: start: 20220107, end: 20220127
  11. REVLIMID [Suspect]
     Active Substance: LENALIDOMIDE
     Dosage: QAM
     Route: 048
     Dates: start: 20200919, end: 20201009
  12. REVLIMID [Suspect]
     Active Substance: LENALIDOMIDE
     Dosage: QAM
     Route: 048
     Dates: start: 20201017, end: 20201106
  13. REVLIMID [Suspect]
     Active Substance: LENALIDOMIDE
     Dosage: FREQUECNY: QAM
     Route: 048
     Dates: start: 20211017
  14. REVLIMID [Suspect]
     Active Substance: LENALIDOMIDE
     Dosage: REASON IF DOSE WAS NOT ADMINISTERED.: REST PERIODO MG
     Route: 065
     Dates: start: 20211008, end: 20211014
  15. REVLIMID [Suspect]
     Active Substance: LENALIDOMIDE
     Dosage: FREQUENCY: QAM
     Route: 048
     Dates: start: 20211112, end: 20211202
  16. REVLIMID [Suspect]
     Active Substance: LENALIDOMIDE
     Dosage: REASON IF DOSE WAS NOT ADMINISTERED.: REST PERIODO MG
     Route: 065
     Dates: start: 20211105, end: 20211111
  17. REVLIMID [Suspect]
     Active Substance: LENALIDOMIDE
     Dosage: REASON IF DOSE WAS NOT ADMINISTERED.: REST PERIOD0 MG
     Route: 065
     Dates: start: 20201107, end: 20201113
  18. REVLIMID [Suspect]
     Active Substance: LENALIDOMIDE
     Dosage: SPECIFY THE OTHER REASON FOR DOSE ADJUSTMENT: SLIGHT INCREASE IN PARAPROTEIN AND LIGHT CHAINS, FREQU
     Route: 048
     Dates: start: 20211210, end: 20211230
  19. REVLIMID [Suspect]
     Active Substance: LENALIDOMIDE
     Dosage: REASON IF DOSE WAS NOT ADMINISTERED.: REST PERIODO MG
     Route: 065
     Dates: start: 20211203, end: 20211209
  20. REVLIMID [Suspect]
     Active Substance: LENALIDOMIDE
     Dosage: REASON IF DOSE WAS NOT ADMINISTERED.: REST PERIODO MG
     Route: 065
     Dates: start: 20220128, end: 20220203
  21. REVLIMID [Suspect]
     Active Substance: LENALIDOMIDE
     Dosage: REASON IF DOSE WAS NOT ADMINISTERED.: REST PERIOD0 MG
     Route: 065
     Dates: start: 20201010, end: 20201016
  22. REVLIMID [Suspect]
     Active Substance: LENALIDOMIDE
     Dosage: QAM
     Route: 048
     Dates: start: 20200822, end: 20200911

REACTIONS (1)
  - Thrombocytopenia [Recovering/Resolving]

NARRATIVE: CASE EVENT DATE: 20220727
